FAERS Safety Report 10089761 (Version 1)
Quarter: 2014Q2

REPORT INFORMATION
  Report Type: Spontaneous
  Country: US (occurrence: US)
  Receive Date: 20140421
  Receipt Date: 20140421
  Transmission Date: 20141212
  Serious: Yes (Disabling, Other)
  Sender: FDA-Public Use
  Company Number: US-PFIZER INC-2014110543

PATIENT
  Age: 34 Year
  Sex: Male
  Weight: 112.47 kg

DRUGS (1)
  1. CELEBREX [Suspect]
     Dosage: UNK

REACTIONS (3)
  - Mental disorder [Unknown]
  - Depression [Unknown]
  - Intermittent explosive disorder [Unknown]
